FAERS Safety Report 9604870 (Version 2)
Quarter: 2013Q4

REPORT INFORMATION
  Report Type: Spontaneous
  Country: US (occurrence: US)
  Receive Date: 20131008
  Receipt Date: 20131008
  Transmission Date: 20140711
  Serious: No
  Sender: FDA-Public Use
  Company Number: US-BAXTER-2013BAX010814

PATIENT
  Sex: Male

DRUGS (3)
  1. DIANEAL LOW CALCIUM [Suspect]
     Indication: PERITONEAL DIALYSIS
     Dosage: 1 BAG
     Route: 033
     Dates: end: 20130319
  2. DIANEAL LOW CALCIUM [Suspect]
     Indication: PERITONEAL DIALYSIS
     Dosage: 1 BAG
     Route: 033
     Dates: end: 20130318
  3. DIANEAL LOW CALCIUM [Suspect]
     Dosage: 2 BAGS
     Route: 033
     Dates: start: 20130319

REACTIONS (2)
  - Weight increased [Recovering/Resolving]
  - Dyspnoea [Recovering/Resolving]
